FAERS Safety Report 9799349 (Version 1)
Quarter: 2014Q1

REPORT INFORMATION
  Report Type: Spontaneous
  Country: NL (occurrence: NL)
  Receive Date: 20140106
  Receipt Date: 20140106
  Transmission Date: 20141002
  Serious: Yes (Life-Threatening, Hospitalization, Other)
  Sender: FDA-Public Use
  Company Number: NL-PFIZER INC-2014002947

PATIENT
  Age: 51 Year
  Sex: Female

DRUGS (7)
  1. VENLAFAXINE HCL [Suspect]
     Indication: MENTAL DISORDER
     Dosage: UNK
  2. VENLAFAXINE HCL [Suspect]
     Dosage: 37.5 MG, 1X/DAY
     Dates: start: 2010
  3. SEROQUEL [Concomitant]
     Dosage: 800 MG, 1X/DAY
  4. FLURAZEPAM [Concomitant]
     Dosage: 15 MG, 1X/DAY
  5. LORMETAZEPAM [Concomitant]
     Dosage: 2 MG, 1X/DAY
  6. PANTOPRAZOL [Concomitant]
     Dosage: 40 MG, 1X/DAY
  7. LEVOTHYROXINE [Concomitant]
     Dosage: 100 UG, 1X/DAY

REACTIONS (3)
  - Withdrawal syndrome [Recovered/Resolved]
  - Suicide attempt [Recovered/Resolved]
  - Drug dependence [Unknown]
